FAERS Safety Report 7577312-6 (Version None)
Quarter: 2011Q2

REPORT INFORMATION
  Report Type: 
  Country: None (occurrence: None)
  Receive Date: 20110628
  Receipt Date: 20110614
  Transmission Date: 20111010
  Serious: Yes (Other)
  Sender: FDA-Public Use
  Company Number: US-BAYER-2010-002068

PATIENT
  Age: 19 Year
  Sex: Female
  Weight: 65.76 kg

DRUGS (6)
  1. DIURETICS [Concomitant]
     Indication: PRODUCT USED FOR UNKNOWN INDICATION
  2. ASCORBIC ACID [Concomitant]
     Indication: PRODUCT USED FOR UNKNOWN INDICATION
  3. YASMIN [Suspect]
     Indication: PREMENSTRUAL SYNDROME
     Dosage: UNK
     Dates: start: 20030501, end: 20030901
  4. ASPIRIN [Concomitant]
     Indication: PRODUCT USED FOR UNKNOWN INDICATION
  5. POTASSIUM [POTASSIUM] [Concomitant]
     Indication: PRODUCT USED FOR UNKNOWN INDICATION
  6. NSAID'S [Concomitant]
     Indication: PRODUCT USED FOR UNKNOWN INDICATION

REACTIONS (2)
  - DEEP VEIN THROMBOSIS [None]
  - SUBCLAVIAN VEIN THROMBOSIS [None]
